FAERS Safety Report 8352395-4 (Version None)
Quarter: 2012Q2

REPORT INFORMATION
  Report Type: 
  Country: None (occurrence: None)
  Receive Date: 20120509
  Receipt Date: 20120427
  Transmission Date: 20120825
  Serious: Yes (Other)
  Sender: FDA-Public Use
  Company Number: 2012MA005584

PATIENT
  Age: 79 Year
  Sex: Female

DRUGS (2)
  1. RAMIPRIL [Suspect]
     Indication: HYPERTENSION
     Dosage: 2.5 MG;PO
     Route: 048
  2. CO-TENIDONE [Concomitant]

REACTIONS (2)
  - PARADOXICAL DRUG REACTION [None]
  - BLOOD PRESSURE INCREASED [None]
